FAERS Safety Report 11247353 (Version 1)
Quarter: 2015Q3

REPORT INFORMATION
  Report Type: Spontaneous
  Country: US (occurrence: None)
  Receive Date: 20150706
  Receipt Date: 20150706
  Transmission Date: 20151125
  Serious: No
  Sender: FDA-Public Use
  Company Number: None

PATIENT
  Age: 59 Year
  Sex: Male
  Weight: 106.6 kg

DRUGS (10)
  1. CLONAZEPAM. [Concomitant]
     Active Substance: CLONAZEPAM
  2. DIVALPROEX [Concomitant]
     Active Substance: DIVALPROEX SODIUM
  3. BYSTOLIC [Concomitant]
     Active Substance: NEBIVOLOL HYDROCHLORIDE
  4. HYDROXYCHLOROQUINE [Concomitant]
     Active Substance: HYDROXYCHLOROQUINE
  5. BELSOMRA [Suspect]
     Active Substance: SUVOREXANT
     Indication: INSOMNIA
     Dosage: BEDTIME, BY MOUTH
     Dates: start: 20150415, end: 20150701
  6. ABILIFY [Concomitant]
     Active Substance: ARIPIPRAZOLE
  7. ALLEGRA [Concomitant]
     Active Substance: FEXOFENADINE HYDROCHLORIDE
  8. BUPROPION XL [Concomitant]
     Active Substance: BUPROPION
  9. CIALIS [Concomitant]
     Active Substance: TADALAFIL
  10. CREON [Concomitant]
     Active Substance: PANCRELIPASE AMYLASE\PANCRELIPASE LIPASE\PANCRELIPASE PROTEASE

REACTIONS (4)
  - Urinary retention [None]
  - Benign prostatic hyperplasia [None]
  - Pollakiuria [None]
  - Micturition urgency [None]

NARRATIVE: CASE EVENT DATE: 20150701
